FAERS Safety Report 21207396 (Version 1)
Quarter: 2022Q3

REPORT INFORMATION
  Report Type: Spontaneous
  Country: US (occurrence: US)
  Receive Date: 20220812
  Receipt Date: 20220812
  Transmission Date: 20221027
  Serious: No
  Sender: FDA-Public Use
  Company Number: US-REGENERON PHARMACEUTICALS, INC.-2022-29638

PATIENT
  Age: 45 Year
  Sex: Female

DRUGS (3)
  1. EVINACUMAB [Suspect]
     Active Substance: EVINACUMAB
     Indication: Type IIa hyperlipidaemia
     Dosage: UNK
     Route: 065
     Dates: start: 202111
  2. ATORVASTATIN [Concomitant]
     Active Substance: ATORVASTATIN
     Indication: Type IIa hyperlipidaemia
     Dosage: 80 MG, UNK
  3. EZETIMIBE [Concomitant]
     Active Substance: EZETIMIBE
     Indication: Type IIa hyperlipidaemia
     Dosage: 10 MG, UNK

REACTIONS (2)
  - Low density lipoprotein increased [Unknown]
  - Therapy non-responder [Unknown]

NARRATIVE: CASE EVENT DATE: 20211101
